FAERS Safety Report 7106006-6 (Version None)
Quarter: 2010Q4

REPORT INFORMATION
  Report Type: 
  Country: None (occurrence: None)
  Receive Date: 20101116
  Receipt Date: 20101105
  Transmission Date: 20110411
  Serious: Yes (Other)
  Sender: FDA-Public Use
  Company Number: GR-JNJFOC-20101003493

PATIENT
  Age: 36 Year
  Sex: Female

DRUGS (5)
  1. REMICADE [Suspect]
     Indication: CROHN'S DISEASE
     Route: 042
  2. REMICADE [Suspect]
     Route: 042
  3. REMICADE [Suspect]
     Route: 042
  4. ANTIHISTAMINES [Suspect]
     Indication: PREMEDICATION
  5. CORTISONE [Concomitant]
     Indication: PREMEDICATION

REACTIONS (5)
  - ANGIOEDEMA [None]
  - ARTHRITIS [None]
  - INFUSION RELATED REACTION [None]
  - MYALGIA [None]
  - RASH [None]
